FAERS Safety Report 6952162-X (Version None)
Quarter: 2010Q3

REPORT INFORMATION
  Report Type: 
  Country: None (occurrence: None)
  Receive Date: 20100829
  Receipt Date: 20100708
  Transmission Date: 20110219
  Serious: No
  Sender: FDA-Public Use
  Company Number: US-ABBOTT-06P-163-0407609-00

PATIENT
  Sex: Male
  Weight: 81.266 kg

DRUGS (7)
  1. NIASPAN [Suspect]
     Indication: HIGH DENSITY LIPOPROTEIN DECREASED
     Dates: end: 20080101
  2. ASPIRIN [Concomitant]
     Indication: PROPHYLAXIS
     Dosage: TAKEN HALF HOUR BEFORE NIASPAN
     Route: 048
  3. ASPIRIN [Concomitant]
     Indication: FLUSHING
  4. TOPROL-XL [Concomitant]
     Indication: PALPITATIONS
     Route: 048
  5. BUSPAR [Concomitant]
     Indication: ANXIETY
     Route: 048
  6. PAXIL [Concomitant]
     Indication: ANXIETY
     Route: 048
  7. VYTORIN [Concomitant]
     Indication: BLOOD CHOLESTEROL INCREASED
     Route: 048

REACTIONS (4)
  - ERYTHEMA [None]
  - FLUSHING [None]
  - HYPERSENSITIVITY [None]
  - PRURITUS [None]
